FAERS Safety Report 10335828 (Version 1)
Quarter: 2014Q3

REPORT INFORMATION
  Report Type: Spontaneous
  Country: US (occurrence: US)
  Receive Date: 20140723
  Receipt Date: 20140723
  Transmission Date: 20150326
  Serious: No
  Sender: FDA-Public Use
  Company Number: US-BRISTOL-MYERS SQUIBB COMPANY-19127992

PATIENT
  Age: 71 Year
  Sex: Male
  Weight: 94 kg

DRUGS (8)
  1. TRICOR [Concomitant]
     Active Substance: FENOFIBRATE
  2. DIGOXIN. [Concomitant]
     Active Substance: DIGOXIN
  3. CARAFATE [Concomitant]
     Active Substance: SUCRALFATE
  4. FUROSEMIDE. [Concomitant]
     Active Substance: FUROSEMIDE
  5. SIMVASTATIN. [Concomitant]
     Active Substance: SIMVASTATIN
  6. LISINOPRIL. [Concomitant]
     Active Substance: LISINOPRIL
  7. COUMADIN [Suspect]
     Active Substance: WARFARIN SODIUM
  8. PROVENGE [Suspect]
     Active Substance: SIPULEUCEL-T
     Indication: PROSTATE CANCER
     Dosage: SUSPENSION??SECOND REGIMEN WAS RECEIVED ON 24-JUN-2013
     Route: 042
     Dates: start: 20130610

REACTIONS (1)
  - Contusion [Recovered/Resolved]

NARRATIVE: CASE EVENT DATE: 20130616
